FAERS Safety Report 6781842-4 (Version None)
Quarter: 2010Q2

REPORT INFORMATION
  Report Type: 
  Country: None (occurrence: None)
  Receive Date: 20100621
  Receipt Date: 20100614
  Transmission Date: 20101027
  Serious: Yes (Hospitalization)
  Sender: FDA-Public Use
  Company Number: PHHO2010TW08552

PATIENT
  Sex: Male
  Weight: 52.8 kg

DRUGS (19)
  1. AFINITOR [Suspect]
     Indication: HEPATIC NEOPLASM MALIGNANT
     Dosage: 7.5 MG, QD
     Route: 048
     Dates: start: 20100307, end: 20100507
  2. AFINITOR [Suspect]
     Dosage: UNK
     Dates: start: 20100524, end: 20100608
  3. MAGNESIUM OXIDE [Concomitant]
     Indication: CONSTIPATION
  4. BISACODYL [Concomitant]
     Indication: CONSTIPATION
  5. DICLOFENAC SODIUM [Concomitant]
     Indication: ABDOMINAL PAIN UPPER
  6. MORPHINE [Concomitant]
     Indication: ABDOMINAL PAIN UPPER
  7. LAMIVUDINE [Concomitant]
     Indication: HEPATITIS B
  8. ESOMEPRAZOLE [Concomitant]
     Indication: PEPTIC ULCER
  9. GENTAMICIN [Concomitant]
     Indication: RECTAL ABSCESS
  10. CEFAZOLIN [Concomitant]
     Indication: RECTAL ABSCESS
  11. METRONIDAZOLE [Concomitant]
     Indication: RECTAL ABSCESS
  12. ACETAMINOPHEN [Concomitant]
     Indication: RECTAL ABSCESS
  13. CEPHALEXIN [Concomitant]
     Indication: RECTAL ABSCESS
  14. STERCULIA [Concomitant]
     Indication: RECTAL ABSCESS
  15. FRANGULA EXTRACT [Concomitant]
     Indication: RECTAL ABSCESS
  16. MEPERIDINE HCL [Concomitant]
     Indication: RECTAL ABSCESS
  17. KETOPROFEN [Concomitant]
     Indication: RECTAL ABSCESS
  18. SENNOSIDE [Concomitant]
     Indication: RECTAL ABSCESS
  19. CLARINASE [Concomitant]
     Indication: PRURITUS

REACTIONS (5)
  - DYSPNOEA [None]
  - HAEMOPTYSIS [None]
  - HAEMOTHORAX [None]
  - PLEURAL EFFUSION [None]
  - THORACIC CAVITY DRAINAGE [None]
